FAERS Safety Report 9348578 (Version 2)
Quarter: 2013Q3

REPORT INFORMATION
  Report Type: Spontaneous
  Country: BR (occurrence: BR)
  Receive Date: 20130614
  Receipt Date: 20130718
  Transmission Date: 20140515
  Serious: Yes (Other)
  Sender: FDA-Public Use
  Company Number: BR-AMGEN-BRASP2013042067

PATIENT
  Age: 56 Year
  Sex: Female

DRUGS (3)
  1. ENBREL [Suspect]
     Indication: RHEUMATOID ARTHRITIS
     Dosage: 50 MG, ONCE WEEKLY
     Route: 058
     Dates: start: 201212
  2. PREDNISONE [Concomitant]
     Dosage: UNK UNK, UNK
  3. NAPROXEN [Concomitant]
     Indication: PAIN
     Dosage: UNK UNK, AS NECESSARY

REACTIONS (6)
  - Rheumatoid arthritis [Unknown]
  - Arthralgia [Not Recovered/Not Resolved]
  - Dysstasia [Unknown]
  - Drug ineffective [Not Recovered/Not Resolved]
  - Influenza [Unknown]
  - Anaemia [Unknown]
